FAERS Safety Report 4763353-0 (Version None)
Quarter: 2005Q3

REPORT INFORMATION
  Report Type: 
  Country: None (occurrence: None)
  Receive Date: 20050831
  Receipt Date: 20050308
  Transmission Date: 20060218
  Serious: Yes (Other)
  Sender: FDA-Public Use
  Company Number: 200510488BBE

PATIENT
  Sex: Male

DRUGS (16)
  1. KOATE [Suspect]
  2. KONYNE [Suspect]
     Indication: FACTOR VIII DEFICIENCY
  3. ANTIHEMOPHILIC FACTOR (HUMAN) [Suspect]
     Dates: start: 19900101, end: 20040101
  4. FACTOR IX COMPLEX [Suspect]
  5. ANTIHEMOPHILIC FACTOR (HUMAN) [Suspect]
  6. FACTOR IX COMPLEX [Suspect]
  7. ANTIHEMOPHILIC FACTOR (HUMAN) [Suspect]
  8. FACTOR IX COMPLEX [Suspect]
  9. ANTIHEMOPHILIC FACTOR (HUMAN) [Suspect]
  10. FACTOR IX COMPLEX [Suspect]
  11. HEMOFIL [Suspect]
     Dates: start: 19800101, end: 20040101
  12. IMMUNATE (FACTOR VIII (ANTIHAEMOPHILIC FACTOR)) [Suspect]
     Dates: start: 19810101, end: 20040101
  13. FACTOR VILL(HYLAND) (FACTOR VIII) [Suspect]
     Dates: start: 19760101, end: 20040101
  14. FACTOR VIII(ALPAH) (FACTOR VIII) [Suspect]
  15. PROFILATE [Suspect]
  16. FACTOR VIII(OCTANATE) (FACTOR VIII) [Suspect]

REACTIONS (3)
  - ADVERSE EVENT [None]
  - HEPATITIS C [None]
  - PHARMACEUTICAL PRODUCT COMPLAINT [None]
